FAERS Safety Report 5423584-3 (Version None)
Quarter: 2007Q3

REPORT INFORMATION
  Report Type: 
  Country: None (occurrence: None)
  Receive Date: 20070821
  Receipt Date: 20070821
  Transmission Date: 20080115
  Serious: Yes (Death, Hospitalization)
  Sender: FDA-Public Use
  Company Number: None

PATIENT
  Sex: Female

DRUGS (2)
  1. ORTHO EVRA [Suspect]
  2. ORTHO TRI-CYCLEN [Suspect]

REACTIONS (5)
  - BUDD-CHIARI SYNDROME [None]
  - DEEP VEIN THROMBOSIS [None]
  - INTESTINAL INFARCTION [None]
  - PULMONARY EMBOLISM [None]
  - VENOUS THROMBOSIS [None]
